FAERS Safety Report 6698644-X (Version None)
Quarter: 2010Q2

REPORT INFORMATION
  Report Type: 
  Country: None (occurrence: None)
  Receive Date: 20100426
  Receipt Date: 20100426
  Transmission Date: 20101027
  Serious: No
  Sender: FDA-Public Use
  Company Number: None

PATIENT
  Age: 22 Year
  Sex: Female
  Weight: 68.0396 kg

DRUGS (3)
  1. ADVAIR DISKUS 100/50 [Suspect]
     Indication: ASTHMA
     Dosage: 2 MEASURED INHALES ONCE PER DAY PO
     Route: 048
     Dates: start: 20040910, end: 20041015
  2. ALBUTEROL RESCUE INHALER [Concomitant]
  3. ALLEGRA [Concomitant]

REACTIONS (3)
  - DYSPNOEA [None]
  - LARYNGITIS [None]
  - POSTNASAL DRIP [None]
